FAERS Safety Report 25627157 (Version 1)
Quarter: 2025Q3

REPORT INFORMATION
  Report Type: Spontaneous
  Country: US (occurrence: None)
  Receive Date: 20250731
  Receipt Date: 20250731
  Transmission Date: 20251021
  Serious: Yes (Death, Hospitalization)
  Sender: FDA-CTU
  Company Number: None

PATIENT
  Age: 71 Year
  Sex: Male
  Weight: 94 kg

DRUGS (2)
  1. CARBOPLATIN [Suspect]
     Active Substance: CARBOPLATIN
     Dates: end: 20240204
  2. TAXOL [Suspect]
     Active Substance: PACLITAXEL
     Dates: end: 20250204

REACTIONS (8)
  - Dyspnoea [None]
  - Hypoxia [None]
  - Oxygen saturation decreased [None]
  - Chest discomfort [None]
  - Acute respiratory failure [None]
  - Pneumonia [None]
  - Pneumonitis [None]
  - Cardiac failure congestive [None]

NARRATIVE: CASE EVENT DATE: 20250416
